FAERS Safety Report 13780008 (Version 3)
Quarter: 2018Q1

REPORT INFORMATION
  Report Type: Spontaneous
  Country: GB (occurrence: GB)
  Receive Date: 20170723
  Receipt Date: 20180131
  Transmission Date: 20180508
  Serious: Yes (Hospitalization, Other)
  Sender: FDA-Public Use
  Company Number: GB-MYLANLABS-2017M1042276

PATIENT
  Sex: Male

DRUGS (1)
  1. CLOZARIL [Suspect]
     Active Substance: CLOZAPINE
     Indication: SCHIZOPHRENIA
     Dosage: UNK
     Route: 048
     Dates: start: 20170410

REACTIONS (9)
  - Therapy cessation [Unknown]
  - Sedation [Recovering/Resolving]
  - Hypotension [Recovering/Resolving]
  - Dysarthria [Recovering/Resolving]
  - Syncope [Recovering/Resolving]
  - Antipsychotic drug level increased [Recovering/Resolving]
  - Somnolence [Recovering/Resolving]
  - Myoclonus [Recovering/Resolving]
  - Schizophrenia [Recovering/Resolving]

NARRATIVE: CASE EVENT DATE: 2017
